FAERS Safety Report 4620186-3 (Version None)
Quarter: 2005Q1

REPORT INFORMATION
  Report Type: 
  Country: None (occurrence: None)
  Receive Date: 20050328
  Receipt Date: 20050318
  Transmission Date: 20050727
  Serious: Yes (Hospitalization)
  Sender: FDA-Public Use
  Company Number: FR-AMGEN-UK121822

PATIENT
  Age: 71 Year
  Sex: Male
  Weight: 93 kg

DRUGS (6)
  1. ARANESP [Suspect]
     Indication: PRE-EXISTING DISEASE
     Route: 058
     Dates: start: 20040324, end: 20040713
  2. NEUPOGEN [Suspect]
     Indication: PRE-EXISTING DISEASE
     Route: 058
     Dates: start: 20040115, end: 20040713
  3. REBETOL [Concomitant]
     Dates: start: 20040115, end: 20040713
  4. PEGASYS [Concomitant]
     Dates: start: 20040115, end: 20040713
  5. SMECTA [Concomitant]
  6. POLARAMINE [Concomitant]
     Dates: start: 20040324, end: 20040713

REACTIONS (7)
  - APLASTIC ANAEMIA [None]
  - ATRIAL FIBRILLATION [None]
  - BRADYCARDIA [None]
  - HYPERTHYROIDISM [None]
  - HYPOTHYROIDISM [None]
  - PSYCHOMOTOR RETARDATION [None]
  - THYROIDITIS [None]
